FAERS Safety Report 4480179-6 (Version None)
Quarter: 2004Q4

REPORT INFORMATION
  Report Type: 
  Country: None (occurrence: None)
  Receive Date: 20041018
  Receipt Date: 20041007
  Transmission Date: 20050328
  Serious: Yes (Hospitalization)
  Sender: FDA-Public Use
  Company Number: STA-AE-04-MTX-372

PATIENT
  Age: 64 Year
  Sex: Male

DRUGS (11)
  1. RHEUMATREX [Suspect]
     Indication: RHEUMATOID ARTHRITIS
     Dosage: 6 MG 1 X PER 1 WK, ORAL
     Route: 048
     Dates: start: 20040727, end: 20040809
  2. ENALAPRIL MALEATE [Concomitant]
  3. ALLOZYM (ALLOPURINOL) [Concomitant]
  4. VOLTAREN [Concomitant]
  5. MUCOSTA (REBAMIPIDE) [Concomitant]
  6. ATELEC (CILNIDIPINE) [Concomitant]
  7. ENALAPRIL MALEATE [Concomitant]
  8. ALLOZYM (ALLOPURINOL) [Concomitant]
  9. VOLTAREN [Concomitant]
  10. MUCOSTA (REBAMIPIDE) [Concomitant]
  11. ATELEC (CLINIDIPINE) [Concomitant]

REACTIONS (13)
  - ABDOMINAL PAIN [None]
  - BONE MARROW DEPRESSION [None]
  - DEHYDRATION [None]
  - DIARRHOEA [None]
  - DIVERTICULITIS [None]
  - DRUG LEVEL INCREASED [None]
  - ESCHERICHIA BACTERAEMIA [None]
  - GLOSSITIS [None]
  - HAEMODIALYSIS [None]
  - PANCYTOPENIA [None]
  - PYREXIA [None]
  - URINE OUTPUT DECREASED [None]
  - VOMITING [None]
